FAERS Safety Report 19998179 (Version 1)
Quarter: 2021Q4

REPORT INFORMATION
  Report Type: Spontaneous
  Country: DE (occurrence: DE)
  Receive Date: 20211026
  Receipt Date: 20211026
  Transmission Date: 20220303
  Serious: Yes (Hospitalization, Other)
  Sender: FDA-Public Use
  Company Number: DE-PFIZER INC-2021737114

PATIENT
  Age: 59 Year
  Sex: Female

DRUGS (4)
  1. METHOTREXATE [Suspect]
     Active Substance: METHOTREXATE
     Indication: Ovarian cancer stage III
     Dosage: UNK
  2. FLUOROURACIL [Suspect]
     Active Substance: FLUOROURACIL
     Indication: Ovarian cancer stage III
     Dosage: UNK
  3. CYCLOPHOSPHAMIDE [Suspect]
     Active Substance: CYCLOPHOSPHAMIDE
     Indication: Ovarian cancer stage III
     Dosage: UNK
  4. ALTRETAMINE [Suspect]
     Active Substance: ALTRETAMINE
     Indication: Ovarian cancer stage III
     Dosage: UNK

REACTIONS (3)
  - Myelosuppression [Recovering/Resolving]
  - Stomatitis [Unknown]
  - Haemorrhage [Unknown]
